FAERS Safety Report 8662410 (Version 3)
Quarter: 2012Q4

REPORT INFORMATION
  Report Type: Spontaneous
  Country: BE (occurrence: None)
  Receive Date: 20120627
  Receipt Date: 20120907
  Transmission Date: 20130627
  Serious: Yes (Hospitalization)
  Sender: FDA-Public Use
  Company Number: ACO_30698_2012

PATIENT
  Age: 47 Year
  Sex: Male
  Weight: 110 kg

DRUGS (9)
  1. AMPYRA [Suspect]
     Indication: MULTIPLE SCLEROSIS
     Dosage: 10 MG, BID, ORAL
     Route: 048
     Dates: start: 20120511, end: 20120525
  2. ZESTORETIC [Concomitant]
  3. EZETIMIBE AND SIMVASTATIN [Concomitant]
  4. TYSABRI [Concomitant]
  5. LYRICA [Concomitant]
  6. CYMBALTA [Concomitant]
  7. VESICARE [Concomitant]
  8. D-CURE (COLECALCIFEROL) [Concomitant]
  9. ASPIRIN [Concomitant]

REACTIONS (1)
  - Uhthoff^s phenomenon [None]
